FAERS Safety Report 9597952 (Version 1)
Quarter: 2013Q4

REPORT INFORMATION
  Report Type: Spontaneous
  Country: US (occurrence: US)
  Receive Date: 20131004
  Receipt Date: 20131004
  Transmission Date: 20140711
  Serious: No
  Sender: FDA-Public Use
  Company Number: US-AMGEN-USASP2013021666

PATIENT
  Age: 85 Year
  Sex: Female

DRUGS (7)
  1. ENBREL [Suspect]
     Indication: RHEUMATOID ARTHRITIS
     Dosage: 25 MG, 2 TIMES/WK
  2. LEVOTHROID [Concomitant]
     Dosage: 100 MUG, UNK
  3. ASPIRIN [Concomitant]
     Dosage: 81 MG, UNK
  4. CARBILEV [Concomitant]
     Dosage: 25-100 MG, UNK
  5. PRAMIPEXOLE [Concomitant]
     Dosage: 1 MG, UNK
  6. FOLIC ACID [Concomitant]
     Dosage: 1 MG, UNK
  7. CALCIUM +D                         /00944201/ [Concomitant]
     Dosage: 600 MG, UNK

REACTIONS (1)
  - Respiratory disorder [Unknown]
